FAERS Safety Report 25930493 (Version 1)
Quarter: 2025Q4

REPORT INFORMATION
  Report Type: Spontaneous
  Country: CN (occurrence: CN)
  Receive Date: 20251016
  Receipt Date: 20251016
  Transmission Date: 20260118
  Serious: Yes (Life-Threatening, Other)
  Sender: INSUD PHARMA
  Company Number: CN-INSUD PHARMA-2510CN08478

PATIENT

DRUGS (7)
  1. FULVESTRANT [Suspect]
     Active Substance: FULVESTRANT
     Indication: Hormone therapy
     Dosage: UNK
     Route: 065
  2. CARBOPLATIN [Suspect]
     Active Substance: CARBOPLATIN
     Indication: Chemotherapy
     Dosage: 6 CYCLES
     Route: 065
  3. PACLITAXEL [Suspect]
     Active Substance: PACLITAXEL
     Indication: Chemotherapy
     Dosage: 6 CYCLES, ALBUMIN BOUND
     Route: 065
  4. PACLITAXEL [Suspect]
     Active Substance: PACLITAXEL
     Dosage: 8 CYCLES, LIPOSOMAL
     Route: 065
  5. EXEMESTANE [Suspect]
     Active Substance: EXEMESTANE
     Indication: Hormone therapy
     Dosage: UNK
     Route: 065
  6. GOSERELIN [Suspect]
     Active Substance: GOSERELIN
     Indication: Hormone therapy
     Dosage: UNK
     Route: 065
  7. CAPECITABINE [Suspect]
     Active Substance: CAPECITABINE
     Indication: Chemotherapy
     Dosage: MAINTENANCE THERAPY
     Route: 065

REACTIONS (1)
  - Myelosuppression [Unknown]
